FAERS Safety Report 9847250 (Version 1)
Quarter: 2014Q1

REPORT INFORMATION
  Report Type: Spontaneous
  Country: US (occurrence: US)
  Receive Date: 20140127
  Receipt Date: 20140127
  Transmission Date: 20141002
  Serious: Yes (Hospitalization)
  Sender: FDA-Public Use
  Company Number: US-DYAX CORP.-2013DX000005

PATIENT
  Age: 48 Year
  Sex: Female
  Weight: 99.43 kg

DRUGS (5)
  1. KALBITOR [Suspect]
     Indication: HEREDITARY ANGIOEDEMA
     Route: 058
     Dates: start: 20130105, end: 20130105
  2. KALBITOR [Suspect]
     Route: 058
     Dates: start: 20130106, end: 20130106
  3. KALBITOR [Suspect]
     Route: 058
     Dates: start: 20130110, end: 20130110
  4. FIRAZYR [Suspect]
     Indication: HEREDITARY ANGIOEDEMA
     Dates: start: 20130106, end: 20130106
  5. CINRYZE [Concomitant]
     Indication: HEREDITARY ANGIOEDEMA
     Dosage: DRUG ROUTE: INTRAVENOUS
     Route: 042

REACTIONS (1)
  - Drug ineffective [Not Recovered/Not Resolved]
